FAERS Safety Report 7301540 (Version 4)
Quarter: 2022Q2

REPORT INFORMATION
  Report Type: Spontaneous
  Country: HK (occurrence: TR)
  Receive Date: 20100302
  Receipt Date: 20220509
  Transmission Date: 20220721
  Serious: Yes (Hospitalization, Other)
  Sender: FDA-Public Use
  Company Number: HK-SANOFI-AVENTIS-2010SA010087

PATIENT
  Age: 23 Year
  Sex: Female

DRUGS (2)
  1. FEXOFENADINE HYDROCHLORIDE [Suspect]
     Active Substance: FEXOFENADINE HYDROCHLORIDE
     Indication: Completed suicide
     Dosage: 20 DF, 1X (20 TABLETS (120 MG EACH, TOTAL 2400 MG))
     Route: 048
     Dates: start: 200802
  2. FUROSEMIDE [Suspect]
     Active Substance: FUROSEMIDE
     Indication: Completed suicide
     Dosage: 9 DF, 1X (9 TABLETS (40 MG EACH, TOTAL 360 MG))
     Route: 048
     Dates: start: 200802

REACTIONS (8)
  - Electrocardiogram QT prolonged [Recovered/Resolved]
  - Intentional overdose [Recovered/Resolved]
  - Loss of consciousness [Recovered/Resolved]
  - Syncope [Recovered/Resolved]
  - Bradycardia [Recovered/Resolved]
  - Hypokalaemia [Recovered/Resolved]
  - Hyponatraemia [Recovered/Resolved]
  - Hypocalcaemia [Recovered/Resolved]

NARRATIVE: CASE EVENT DATE: 20080201
